FAERS Safety Report 7685641-0 (Version None)
Quarter: 2011Q3

REPORT INFORMATION
  Report Type: 
  Country: None (occurrence: None)
  Receive Date: 20110815
  Receipt Date: 20110815
  Transmission Date: 20111222
  Serious: Yes (Hospitalization)
  Sender: FDA-Public Use
  Company Number: None

PATIENT
  Sex: Male
  Weight: 88.4514 kg

DRUGS (1)
  1. BALSALAZIDE DISODIUM [Suspect]
     Indication: COLITIS ULCERATIVE
     Dosage: 750 MG 3 CAPSULES 3 TIMES A DAY BY MOUTH
     Route: 048
     Dates: start: 20110723, end: 20110724

REACTIONS (1)
  - CHEST PAIN [None]
